FAERS Safety Report 9960347 (Version 1)
Quarter: 2014Q1

REPORT INFORMATION
  Report Type: Spontaneous
  Country: CA (occurrence: CA)
  Receive Date: 20140305
  Receipt Date: 20140305
  Transmission Date: 20141002
  Serious: Yes (Other)
  Sender: FDA-Public Use
  Company Number: CA-009507513-1402CAN013060

PATIENT
  Age: 66 Year
  Sex: Male

DRUGS (10)
  1. EZETROL [Suspect]
     Dosage: 10 MG 1 EVERY 1 DAYS
     Route: 065
  2. CITALOPRAM [Suspect]
     Dosage: 40 MG 1 EVERY 1 DAY(S)
     Route: 065
  3. ATORVASTATIN CALCIUM [Suspect]
     Dosage: 20 MG 1 EVERY 1 DAY(S)
     Route: 065
  4. CLONAZEPAM [Suspect]
     Dosage: 4 MG 1 EVERY 1 DAY( S)
     Route: 065
  5. QUETIAPINE FUMARATE [Suspect]
     Dosage: UNK
     Route: 065
  6. PANTOPRAZOLE [Suspect]
     Dosage: 10 MG 1 EVERY 1 DAY(S)
     Route: 065
  7. TRAZODONE HYDROCHLORIDE [Suspect]
     Dosage: 100 MG 1 EVERY 1 DAY(S)
     Route: 065
  8. WELLBUTRIN XL [Suspect]
     Dosage: 150 MG 1 EVERY 1 DAY(S)
     Route: 065
  9. NAPROXEN [Concomitant]
  10. ONE-A-DAY 50 PLUS [Concomitant]

REACTIONS (8)
  - Balance disorder [Unknown]
  - Pain [Not Recovered/Not Resolved]
  - Pain in extremity [Not Recovered/Not Resolved]
  - Loss of consciousness [Unknown]
  - Head discomfort [Unknown]
  - Fall [Not Recovered/Not Resolved]
  - Dizziness [Unknown]
  - Bursitis [Not Recovered/Not Resolved]
